FAERS Safety Report 18978030 (Version 1)
Quarter: 2021Q1

REPORT INFORMATION
  Report Type: Spontaneous
  Country: US (occurrence: US)
  Receive Date: 20210307
  Receipt Date: 20210307
  Transmission Date: 20210420
  Serious: No
  Sender: FDA-Public Use
  Company Number: US-ORGANON-O2102USA007752

PATIENT
  Sex: Male

DRUGS (6)
  1. KLONOPIN [Suspect]
     Active Substance: CLONAZEPAM
  2. RYTARY [Suspect]
     Active Substance: CARBIDOPA\LEVODOPA
  3. RASAGILINE. [Suspect]
     Active Substance: RASAGILINE
  4. SINEMET [Suspect]
     Active Substance: CARBIDOPA\LEVODOPA
     Dosage: 1.5 TABLET 4 TIMES A DAY
     Route: 048
  5. MIRAPEX [Suspect]
     Active Substance: PRAMIPEXOLE DIHYDROCHLORIDE
  6. INBRIJA [Suspect]
     Active Substance: LEVODOPA

REACTIONS (9)
  - Feeling abnormal [Unknown]
  - Circumstance or information capable of leading to medication error [Unknown]
  - Drug ineffective [Unknown]
  - Obsessive-compulsive disorder [Unknown]
  - Inappropriate schedule of product administration [Unknown]
  - Wrong technique in product usage process [Unknown]
  - Pain [Unknown]
  - Therapeutic response shortened [Unknown]
  - Dyspnoea [Unknown]
